FAERS Safety Report 5396383-9 (Version None)
Quarter: 2007Q3

REPORT INFORMATION
  Report Type: 
  Country: None (occurrence: None)
  Receive Date: 20070725
  Receipt Date: 20070717
  Transmission Date: 20080115
  Serious: Yes (Death)
  Sender: FDA-Public Use
  Company Number: US-AMGEN-US141022

PATIENT
  Sex: Female

DRUGS (2)
  1. ENBREL [Suspect]
     Indication: PULMONARY FIBROSIS
     Dates: start: 20010101
  2. IMURAN [Concomitant]

REACTIONS (2)
  - DEATH [None]
  - PULMONARY FIBROSIS [None]
